FAERS Safety Report 8022630-0 (Version None)
Quarter: 2012Q1

REPORT INFORMATION
  Report Type: 
  Country: None (occurrence: None)
  Receive Date: 20120104
  Receipt Date: 20111227
  Transmission Date: 20120608
  Serious: Yes (Hospitalization)
  Sender: FDA-Public Use
  Company Number: JP-GLAXOSMITHKLINE-B0772047A

PATIENT
  Sex: Female
  Weight: 47 kg

DRUGS (3)
  1. TYKERB [Suspect]
     Indication: BREAST CANCER
     Dosage: 1250MG PER DAY
     Route: 048
     Dates: start: 20110307, end: 20110530
  2. VINORELBINE TARTRATE [Suspect]
     Indication: BREAST CANCER
     Dosage: 40MG PER DAY
     Route: 042
     Dates: start: 20110207, end: 20110530
  3. TRASTUZUMAB [Concomitant]
     Indication: BREAST CANCER
     Dosage: 450MG PER DAY
     Route: 042
     Dates: start: 20110207, end: 20110530

REACTIONS (1)
  - WHITE BLOOD CELL COUNT DECREASED [None]
